FAERS Safety Report 23452882 (Version 1)
Quarter: 2024Q1

REPORT INFORMATION
  Report Type: Spontaneous
  Country: GB (occurrence: None)
  Receive Date: 20240129
  Receipt Date: 20240129
  Transmission Date: 20240410
  Serious: Yes (Other)
  Sender: FDA-Public Use
  Company Number: 2024A022297

PATIENT
  Sex: Female

DRUGS (2)
  1. OSIMERTINIB [Suspect]
     Active Substance: OSIMERTINIB
     Indication: Non-small cell lung cancer
     Route: 048
  2. OSIMERTINIB [Concomitant]
     Active Substance: OSIMERTINIB

REACTIONS (2)
  - Metastases to central nervous system [Unknown]
  - Malignant neoplasm progression [Unknown]
